FAERS Safety Report 7470888-9 (Version None)
Quarter: 2011Q2

REPORT INFORMATION
  Report Type: 
  Country: None (occurrence: None)
  Receive Date: 20110510
  Receipt Date: 20110427
  Transmission Date: 20111010
  Serious: Yes (Hospitalization, Other)
  Sender: FDA-Public Use
  Company Number: SE-ELI_LILLY_AND_COMPANY-SE201104000666

PATIENT
  Sex: Male
  Weight: 70 kg

DRUGS (12)
  1. STRATTERA [Suspect]
     Dosage: 60 MG, UNK
     Dates: start: 20081101, end: 20091001
  2. CONCERTA [Concomitant]
     Dosage: 1 UNK, UNK
  3. STRATTERA [Suspect]
     Dosage: 85 MG, UNK
     Dates: start: 20070401, end: 20070530
  4. STRATTERA [Suspect]
     Dosage: UNK
     Dates: start: 20091001, end: 20110101
  5. STRATTERA [Suspect]
     Dosage: 50 MG, UNK
  6. STRATTERA [Suspect]
     Dosage: 60 MG, UNK
     Dates: start: 20061101, end: 20070401
  7. SILVER COLLOIDAL [Concomitant]
     Dosage: 1 UNK, UNK
  8. STRATTERA [Suspect]
     Indication: ATTENTION DEFICIT/HYPERACTIVITY DISORDER
     Dosage: 20 MG, UNK
     Dates: start: 20061001
  9. LAMICTAL [Concomitant]
     Dosage: UNK
  10. STRATTERA [Suspect]
     Dosage: 25 MG, UNK
     Dates: start: 20071001
  11. STRATTERA [Suspect]
     Dosage: 80 MG, UNK
  12. MINIRIN [Concomitant]
     Indication: ENURESIS
     Dosage: UNK
     Dates: start: 20081201

REACTIONS (5)
  - INSOMNIA [None]
  - EPILEPSY [None]
  - PYREXIA [None]
  - GRAND MAL CONVULSION [None]
  - ENURESIS [None]
